FAERS Safety Report 9787652 (Version 1)
Quarter: 2013Q4

REPORT INFORMATION
  Report Type: Spontaneous
  Country: KR (occurrence: KR)
  Receive Date: 20131230
  Receipt Date: 20131230
  Transmission Date: 20140711
  Serious: Yes (Death)
  Sender: FDA-Public Use
  Company Number: KR-JNJFOC-20131215732

PATIENT
  Age: 78 Year
  Sex: Male

DRUGS (6)
  1. FINIBAX [Suspect]
     Indication: PNEUMONIA
     Route: 041
     Dates: start: 20121127, end: 20121210
  2. AMIKACIN [Concomitant]
     Indication: PNEUMONIA
     Route: 065
     Dates: start: 20121112, end: 20121210
  3. VANCO [Concomitant]
     Indication: PNEUMONIA
     Route: 065
     Dates: start: 20121118, end: 20121209
  4. MEROPENEM [Concomitant]
     Indication: PNEUMONIA
     Route: 065
     Dates: start: 20121112, end: 20121210
  5. LINEZOLID [Concomitant]
     Indication: PNEUMONIA
     Route: 065
     Dates: start: 20121112, end: 20121210
  6. AZATHIOPRINE [Concomitant]
     Indication: PNEUMONIA
     Route: 065
     Dates: start: 20121112, end: 20121205

REACTIONS (1)
  - Shock [Fatal]
